FAERS Safety Report 22593252 (Version 1)
Quarter: 2023Q2

REPORT INFORMATION
  Report Type: Spontaneous
  Country: US (occurrence: US)
  Receive Date: 20230613
  Receipt Date: 20230613
  Transmission Date: 20230722
  Serious: No
  Sender: FDA-Public Use
  Company Number: US-GSK-US2023AMR080558

PATIENT
  Sex: Female

DRUGS (1)
  1. BENLYSTA [Suspect]
     Active Substance: BELIMUMAB
     Indication: Systemic lupus erythematosus
     Dosage: UNK,200 MG/ML, WE, 400 MG (2 PENS) SUBCUTANEOUSLY 1 TIME A WEEK FOR 4 DOSES
     Route: 058

REACTIONS (1)
  - Product use issue [Unknown]
